FAERS Safety Report 10975634 (Version 2)
Quarter: 2015Q2

REPORT INFORMATION
  Report Type: Spontaneous
  Country: US (occurrence: US)
  Receive Date: 20150401
  Receipt Date: 20150417
  Transmission Date: 20150821
  Serious: No
  Sender: FDA-Public Use
  Company Number: US-GLAXOSMITHKLINE-US2015042732

PATIENT
  Age: 49 Year
  Sex: Female

DRUGS (1)
  1. FLONASE [Suspect]
     Active Substance: FLUTICASONE PROPIONATE
     Indication: HYPERSENSITIVITY
     Dosage: UNK
     Dates: start: 20150220, end: 20150223

REACTIONS (9)
  - Rhinalgia [Not Recovered/Not Resolved]
  - Skin operation [Not Recovered/Not Resolved]
  - Nasal oedema [Not Recovered/Not Resolved]
  - Scab [Not Recovered/Not Resolved]
  - Skin erosion [Not Recovered/Not Resolved]
  - Nasal ulcer [Not Recovered/Not Resolved]
  - Nasal discomfort [Not Recovered/Not Resolved]
  - Wound [Not Recovered/Not Resolved]
  - Epistaxis [Not Recovered/Not Resolved]
